FAERS Safety Report 8435894-6 (Version None)
Quarter: 2012Q2

REPORT INFORMATION
  Report Type: 
  Country: None (occurrence: None)
  Receive Date: 20120614
  Receipt Date: 20120605
  Transmission Date: 20120825
  Serious: Yes (Hospitalization)
  Sender: FDA-Public Use
  Company Number: JP-ASTRAZENECA-2012SE38403

PATIENT
  Age: 68 Year
  Sex: Male

DRUGS (15)
  1. MUCOSTA [Concomitant]
     Route: 048
  2. OMEPRAZOLE [Concomitant]
     Route: 048
  3. LANTUS [Concomitant]
     Route: 065
  4. NOVOLIN R [Concomitant]
     Route: 065
  5. TAURINE [Concomitant]
     Route: 048
  6. LASIX [Concomitant]
     Route: 048
  7. ALDACTONE [Concomitant]
     Route: 048
  8. LIVACT [Concomitant]
     Route: 065
  9. LULICON [Concomitant]
     Route: 065
  10. SELOKEN L [Concomitant]
     Route: 048
  11. FLIVASTATIN SODIUM [Concomitant]
     Route: 048
  12. PASTARON [Concomitant]
     Route: 065
  13. SYMBICORT [Suspect]
     Indication: ASTHMA
     Dosage: 2 DF, UNKNOWN
     Route: 055
  14. ALLOPURINOL [Concomitant]
     Route: 048
  15. URSO 250 [Concomitant]
     Route: 048

REACTIONS (1)
  - DIABETES MELLITUS INADEQUATE CONTROL [None]
